FAERS Safety Report 7509613-1 (Version None)
Quarter: 2011Q2

REPORT INFORMATION
  Report Type: 
  Country: None (occurrence: None)
  Receive Date: 20110527
  Receipt Date: 20110517
  Transmission Date: 20111010
  Serious: Yes (Hospitalization)
  Sender: FDA-Public Use
  Company Number: MW-ABBOTT-11P-100-0726539-00

PATIENT
  Age: 33 Year
  Sex: Female

DRUGS (4)
  1. COTRIM [Concomitant]
     Indication: PRODUCT USED FOR UNKNOWN INDICATION
     Dates: start: 20061121
  2. LOPINAVIR/RITONAVIR [Suspect]
     Indication: HIV INFECTION
     Route: 048
     Dates: start: 20110325
  3. RALTEGRAVIR [Concomitant]
     Indication: HIV INFECTION
     Dates: start: 20110325
  4. GLYBURIDE [Concomitant]
     Indication: PRODUCT USED FOR UNKNOWN INDICATION
     Dates: start: 20110322, end: 20110513

REACTIONS (5)
  - PANCREATITIS [None]
  - COUGH [None]
  - DIABETIC KETOACIDOSIS [None]
  - POLLAKIURIA [None]
  - ABDOMINAL PAIN [None]
